FAERS Safety Report 7945515-4 (Version None)
Quarter: 2011Q4

REPORT INFORMATION
  Report Type: 
  Country: None (occurrence: None)
  Receive Date: 20111129
  Receipt Date: 20111118
  Transmission Date: 20120403
  Serious: Yes (Hospitalization, Other)
  Sender: FDA-Public Use
  Company Number: MX-SANOFI-AVENTIS-2011SA076398

PATIENT
  Age: 52 Year
  Sex: Female
  Weight: 86 kg

DRUGS (3)
  1. LANTUS [Suspect]
     Indication: TYPE 2 DIABETES MELLITUS
     Route: 058
     Dates: start: 20070101
  2. BEZAFIBRATE [Suspect]
     Route: 048
     Dates: start: 20080101, end: 20110801
  3. NIFEDIPINE [Concomitant]
     Route: 048
     Dates: start: 19860101

REACTIONS (2)
  - HYPERTRIGLYCERIDAEMIA [None]
  - MYOSITIS [None]
